FAERS Safety Report 6389405-X (Version None)
Quarter: 2010Q1

REPORT INFORMATION
  Report Type: 
  Country: None (occurrence: None)
  Receive Date: 20091006
  Receipt Date: 20090924
  Transmission Date: 20100710
  Serious: Yes (Other)
  Sender: FDA-Public Use
  Company Number: US-JNJFOC-20090907798

PATIENT
  Age: 4 Year
  Sex: Male
  Weight: 18.14 kg

DRUGS (4)
  1. CHILDREN'S TYLENOL SUSPENSION [Suspect]
     Route: 048
  2. CHILDREN'S TYLENOL SUSPENSION [Suspect]
     Indication: PYREXIA
     Route: 048
  3. CHILDREN'S MULTIVITAMIN [Concomitant]
     Indication: MEDICAL DIET
  4. SELENIUM [Concomitant]

REACTIONS (3)
  - ERYTHEMA [None]
  - EYE SWELLING [None]
  - TRANSMISSION OF AN INFECTIOUS AGENT VIA A MEDICINAL PRODUCT [None]
